FAERS Safety Report 19267867 (Version 1)
Quarter: 2021Q2

REPORT INFORMATION
  Report Type: Spontaneous
  Country: AE (occurrence: US)
  Receive Date: 20210517
  Receipt Date: 20210517
  Transmission Date: 20210717
  Serious: No
  Sender: FDA-Public Use
  Company Number: AE-BAYER-2021-139669

PATIENT
  Sex: Male

DRUGS (2)
  1. NUBEQA [Suspect]
     Active Substance: DAROLUTAMIDE
  2. ROSUVASTATIN. [Concomitant]
     Active Substance: ROSUVASTATIN
     Dosage: DAILY DOSE 10 MG
     Dates: end: 202104

REACTIONS (4)
  - Low density lipoprotein decreased [None]
  - Blood cholesterol decreased [None]
  - High density lipoprotein increased [None]
  - Blood triglycerides decreased [None]
